FAERS Safety Report 6396602-6 (Version None)
Quarter: 2009Q4

REPORT INFORMATION
  Report Type: 
  Country: None (occurrence: None)
  Receive Date: 20091012
  Receipt Date: 20091007
  Transmission Date: 20100525
  Serious: Yes (Death)
  Sender: FDA-Public Use
  Company Number: US-BRISTOL-MYERS SQUIBB COMPANY-14811236

PATIENT
  Age: 56 Year
  Sex: Female

DRUGS (2)
  1. IXABEPILONE [Suspect]
     Indication: BREAST CANCER METASTATIC
     Dosage: OVER 1 H ON DAY 1,8, AND 15 AND LOST DOSE ON 26-AUG-09(CYCLE 1,DAY 15)
     Route: 042
     Dates: start: 20090812, end: 20090826
  2. BEVACIZUMAB [Suspect]
     Indication: BREAST CANCER METASTATIC
     Dosage: OVER-30-90 MIN ON DAYS 1 AND 15 AND LOST DOSE ON 26-AUG-09(CYCLE 1,DAY 15)
     Route: 042
     Dates: start: 20090812, end: 20090826

REACTIONS (1)
  - DEATH [None]
